FAERS Safety Report 12376084 (Version 5)
Quarter: 2016Q3

REPORT INFORMATION
  Report Type: Spontaneous
  Country: FR (occurrence: FR)
  Receive Date: 20160517
  Receipt Date: 20160701
  Transmission Date: 20161109
  Serious: Yes (Other)
  Sender: FDA-Public Use
  Company Number: FR-ACORDA-ACO_124003_2016

PATIENT
  Age: 51 Year
  Sex: Female

DRUGS (2)
  1. QUTENZA [Suspect]
     Active Substance: CAPSAICIN
     Indication: NEURALGIA
     Dosage: 1 PATCH, UNKNOWN FREQ.
     Route: 003
     Dates: start: 20160310, end: 20160310
  2. QUTENZA [Suspect]
     Active Substance: CAPSAICIN
     Dosage: 1 PATCH, UNKNOWN FREQ.
     Route: 003
     Dates: start: 20160405, end: 20160405

REACTIONS (8)
  - Application site vesicles [Recovered/Resolved]
  - Drug administration error [Unknown]
  - Incorrect product storage [Unknown]
  - Application site burn [Unknown]
  - Application site erythema [Recovered/Resolved]
  - Application site pain [Recovered/Resolved]
  - Intentional product misuse [Unknown]
  - Application site pain [Recovered/Resolved]

NARRATIVE: CASE EVENT DATE: 20160310
